FAERS Safety Report 20066701 (Version 2)
Quarter: 2021Q4

REPORT INFORMATION
  Report Type: Spontaneous
  Country: US (occurrence: US)
  Receive Date: 20211115
  Receipt Date: 20211210
  Transmission Date: 20220303
  Serious: No
  Sender: FDA-Public Use
  Company Number: US-BAUSCH-BL-2021-036919

PATIENT
  Age: 78 Year
  Sex: Male

DRUGS (7)
  1. NIFEDIPINE [Suspect]
     Active Substance: NIFEDIPINE
     Indication: Product used for unknown indication
     Route: 065
  2. HYDRALAZINE [Concomitant]
     Active Substance: HYDRALAZINE HYDROCHLORIDE
     Indication: Product used for unknown indication
  3. CINACALCET [Concomitant]
     Active Substance: CINACALCET
     Indication: Product used for unknown indication
  4. FUROSEMIDE [Concomitant]
     Active Substance: FUROSEMIDE
     Indication: Product used for unknown indication
  5. OMEPRAZOLE [Concomitant]
     Active Substance: OMEPRAZOLE
     Indication: Product used for unknown indication
  6. CALCIUM ACETATE [Concomitant]
     Active Substance: CALCIUM ACETATE
     Indication: Product used for unknown indication
  7. DARBEPOETIN ALFA [Concomitant]
     Active Substance: DARBEPOETIN ALFA
     Indication: Product used for unknown indication

REACTIONS (1)
  - Peritoneal cloudy effluent [Recovered/Resolved]
